FAERS Safety Report 18637665 (Version 2)
Quarter: 2025Q1

REPORT INFORMATION
  Report Type: Spontaneous
  Country: US (occurrence: US)
  Receive Date: 20201218
  Receipt Date: 20250131
  Transmission Date: 20250408
  Serious: Yes (Other)
  Sender: ELI LILLY AND COMPANY
  Company Number: US-ELI_LILLY_AND_COMPANY-US202012008459

PATIENT
  Age: 69 Year
  Sex: Male

DRUGS (1)
  1. TRULICITY [Suspect]
     Active Substance: DULAGLUTIDE
     Indication: Product used for unknown indication
     Route: 058

REACTIONS (4)
  - Blindness [Not Recovered/Not Resolved]
  - Choroidal dystrophy [Unknown]
  - Stargardt^s disease [Unknown]
  - Cataract [Unknown]
